FAERS Safety Report 15296251 (Version 1)
Quarter: 2018Q3

REPORT INFORMATION
  Report Type: Spontaneous
  Country: DE (occurrence: DE)
  Receive Date: 20180820
  Receipt Date: 20180820
  Transmission Date: 20181010
  Serious: Yes (Other)
  Sender: FDA-Public Use
  Company Number: DE-ACCORD-070828

PATIENT
  Age: 1 Day
  Sex: Female
  Weight: 3.15 kg

DRUGS (6)
  1. FOLIC ACID. [Concomitant]
     Active Substance: FOLIC ACID
     Indication: PROPHYLAXIS OF NEURAL TUBE DEFECT
     Dosage: MATERNAL DOSE: UNK
     Route: 064
  2. TRAMADOL. [Suspect]
     Active Substance: TRAMADOL
     Indication: BACK PAIN
     Dosage: MATERNAL DOSE: UNK, PRN
     Route: 064
  3. IBUPROFEN. [Concomitant]
     Active Substance: IBUPROFEN
     Indication: PAIN
     Dosage: MATERNAL DOSE: 800 MG, QD 800 (MG/D)
     Route: 064
  4. QUETIAPINE. [Suspect]
     Active Substance: QUETIAPINE
     Indication: OBSESSIVE-COMPULSIVE DISORDER
     Dosage: MATERNAL DOSE: 600 MG, QD
     Route: 064
     Dates: start: 20161010, end: 20170702
  5. MIRTAZAPINE. [Suspect]
     Active Substance: MIRTAZAPINE
     Indication: OBSESSIVE-COMPULSIVE DISORDER
     Dosage: 45 (MG/D)
     Route: 064
     Dates: start: 20161010, end: 20170702
  6. FLUOXETINE [Suspect]
     Active Substance: FLUOXETINE HYDROCHLORIDE
     Indication: OBSESSIVE-COMPULSIVE DISORDER
     Dosage: MATERNAL DOSE: 60 MG, QD
     Route: 064
     Dates: start: 20161010, end: 20170202

REACTIONS (3)
  - Foetal exposure during pregnancy [Unknown]
  - Neonatal hypoxia [Recovered/Resolved]
  - Hypertonia neonatal [Recovered/Resolved]

NARRATIVE: CASE EVENT DATE: 20170702
